FAERS Safety Report 13643852 (Version 2)
Quarter: 2017Q2

REPORT INFORMATION
  Report Type: Report from Study
  Country: IT (occurrence: IT)
  Receive Date: 20170612
  Receipt Date: 20170625
  Transmission Date: 20170830
  Serious: Yes (Hospitalization, Other)
  Sender: FDA-Public Use
  Company Number: IT-MYLANLABS-2017M1034746

PATIENT

DRUGS (4)
  1. TOPIRAMATE. [Suspect]
     Active Substance: TOPIRAMATE
     Indication: EPILEPSY
     Dosage: 2 DF TOTAL
     Route: 048
     Dates: start: 20170315, end: 20170315
  2. DELORAZEPAM [Suspect]
     Active Substance: DELORAZEPAM
     Indication: ANXIETY
     Dosage: 17 DF TOTAL
     Route: 048
     Dates: start: 20170315, end: 20170315
  3. HALDOL [Suspect]
     Active Substance: HALOPERIDOL
     Indication: AGITATION
     Dosage: 30 ML TOTAL
     Route: 048
     Dates: start: 20170315, end: 20170315
  4. FLUOXEREN [Suspect]
     Active Substance: FLUOXETINE HYDROCHLORIDE
     Indication: DEPRESSION
     Dosage: 80 MG TOTAL
     Route: 048
     Dates: start: 20170315, end: 20170315

REACTIONS (5)
  - Electrocardiogram abnormal [Recovered/Resolved]
  - Intentional self-injury [Recovered/Resolved]
  - Overdose [Recovered/Resolved]
  - Drug use disorder [Recovered/Resolved]
  - Mood altered [Recovered/Resolved]

NARRATIVE: CASE EVENT DATE: 20170315
